FAERS Safety Report 11825679 (Version 1)
Quarter: 2015Q4

REPORT INFORMATION
  Report Type: Spontaneous
  Country: US (occurrence: US)
  Receive Date: 20151211
  Receipt Date: 20151211
  Transmission Date: 20160305
  Serious: No
  Sender: FDA-Public Use
  Company Number: US-JNJFOC-20150604790

PATIENT
  Sex: Male

DRUGS (13)
  1. PRILOSEC [Concomitant]
     Active Substance: OMEPRAZOLE MAGNESIUM
  2. COQ10 [Concomitant]
     Active Substance: UBIDECARENONE
  3. METFORMIN [Concomitant]
     Active Substance: METFORMIN HYDROCHLORIDE
  4. PRAVASTATIN [Concomitant]
     Active Substance: PRAVASTATIN\PRAVASTATIN SODIUM
  5. TAMSULOSIN [Concomitant]
     Active Substance: TAMSULOSIN
     Dates: end: 201505
  6. LUMIGAN [Concomitant]
     Active Substance: BIMATOPROST
  7. IMBRUVICA [Suspect]
     Active Substance: IBRUTINIB
     Indication: CHRONIC LYMPHOCYTIC LEUKAEMIA
     Route: 048
     Dates: start: 20140415
  8. ASPIRIN. [Concomitant]
     Active Substance: ASPIRIN
  9. DOXAZOSIN [Concomitant]
     Active Substance: DOXAZOSIN\DOXAZOSIN MESYLATE
  10. FISH OIL [Concomitant]
     Active Substance: FISH OIL
  11. MULTIVITAMINS [Concomitant]
     Active Substance: VITAMINS
  12. VALACYCLOVIR HYDROCHLORIDE. [Concomitant]
     Active Substance: VALACYCLOVIR HYDROCHLORIDE
  13. TESSALON [Concomitant]
     Active Substance: BENZONATATE
     Indication: MEMORY IMPAIRMENT

REACTIONS (3)
  - Laceration [Recovered/Resolved]
  - Memory impairment [Unknown]
  - Fall [Recovered/Resolved]

NARRATIVE: CASE EVENT DATE: 2015
